FAERS Safety Report 15363461 (Version 3)
Quarter: 2018Q3

REPORT INFORMATION
  Report Type: Report from Study
  Country: None (occurrence: US)
  Receive Date: 20180907
  Receipt Date: 20180924
  Transmission Date: 20181010
  Serious: Yes (Other)
  Sender: FDA-Public Use
  Company Number: US-ABBVIE-18K-163-2476275-00

PATIENT
  Sex: Male
  Weight: 57.2 kg

DRUGS (1)
  1. MAVYRET [Suspect]
     Active Substance: GLECAPREVIR\PIBRENTASVIR
     Indication: CHRONIC HEPATITIS C
     Dosage: MAVYRET 100/40 MG TABS WEEKLY PACK?MAVYRET: GT1A, TN, F3, 8WKS
     Route: 048
     Dates: start: 20180703, end: 20180919

REACTIONS (3)
  - Pain [Unknown]
  - Suicide attempt [Unknown]
  - Depression [Unknown]

NARRATIVE: CASE EVENT DATE: 2018
